FAERS Safety Report 23720243 (Version 1)
Quarter: 2024Q2

REPORT INFORMATION
  Report Type: Spontaneous
  Country: US (occurrence: US)
  Receive Date: 20240408
  Receipt Date: 20240408
  Transmission Date: 20240716
  Serious: Yes (Other)
  Sender: FDA-Public Use
  Company Number: US-AIMMUNE THERAPEUTICS, INC.-2024AIMT00282

PATIENT

DRUGS (20)
  1. VOWST [Suspect]
     Active Substance: DONOR HUMAN STOOL SPORES (ETHANOL TREATED)
     Indication: Clostridium difficile infection
     Dosage: UNK CAPSULES, 1X/DAY
     Route: 048
     Dates: start: 20240222
  2. VOWST [Suspect]
     Active Substance: DONOR HUMAN STOOL SPORES (ETHANOL TREATED)
     Dosage: UNK CAPSULES, ONCE, PRIOR TO EVENTS BELCHING, NAUSEA AND WATERY DIARRHEA/UNCONTROLLABLE RUNS
     Route: 048
     Dates: start: 20240222
  3. VOWST [Suspect]
     Active Substance: DONOR HUMAN STOOL SPORES (ETHANOL TREATED)
     Dosage: UNK CAPSULES, ONCE, PRIOR TO EVENT HEADACH
     Route: 048
  4. MESALAMINE [Suspect]
     Active Substance: MESALAMINE
     Indication: Colitis
     Dosage: 1.2 MG, 2X/DAY
     Route: 048
  5. XANAX [Concomitant]
     Active Substance: ALPRAZOLAM
     Indication: Product used for unknown indication
     Dosage: 0.5 MG, 1X/DAY
     Route: 048
     Dates: start: 20231221
  6. VALTREX [Concomitant]
     Active Substance: VALACYCLOVIR HYDROCHLORIDE
     Indication: Prophylaxis
     Dosage: 500 MG, 4X/DAY
     Route: 048
  7. TEKTURNA [Concomitant]
     Active Substance: ALISKIREN HEMIFUMARATE
     Indication: Blood pressure measurement
     Dosage: 300 MG
     Route: 048
     Dates: start: 20180705
  8. SUCRALFATE [Concomitant]
     Active Substance: SUCRALFATE
     Indication: Product used for unknown indication
     Dosage: 1 MG, 1X/DAY
     Route: 048
  9. METOPROLOL SUCCINATE [Concomitant]
     Active Substance: METOPROLOL SUCCINATE
     Indication: Blood pressure measurement
     Dosage: 37.5 MG, AT NIGHT
     Route: 048
     Dates: start: 20180531
  10. PEPCID [Concomitant]
     Active Substance: FAMOTIDINE
     Indication: Product used for unknown indication
     Dosage: 40 MG, 2X/DAY
     Route: 048
  11. CLONIDINE [Concomitant]
     Active Substance: CLONIDINE
     Indication: Blood pressure measurement
     Dosage: 0.2 MG
     Route: 062
  12. ONDANSETRON [Concomitant]
     Active Substance: ONDANSETRON
     Indication: Product used for unknown indication
     Dosage: 4 MG, 2X/DAY
     Route: 048
  13. TOPROL XL [Concomitant]
     Active Substance: METOPROLOL SUCCINATE
     Indication: Product used for unknown indication
     Dosage: 25 MG, 1X/DAY
     Route: 048
  14. VANCOMYCIN HYDROCHLORIDE [Concomitant]
     Active Substance: VANCOMYCIN HYDROCHLORIDE
     Indication: Clostridium difficile infection
     Dosage: 125 MG, 4X/DAY
     Route: 048
     Dates: start: 20230325
  15. VALIUM [Concomitant]
     Active Substance: DIAZEPAM
     Indication: Product used for unknown indication
     Dosage: 5 MG, AS NEEDED
     Route: 048
  16. CYMBALTA [Concomitant]
     Active Substance: DULOXETINE HYDROCHLORIDE
     Indication: Fibromyalgia
     Dosage: 30 MG, AT NIGHT
     Route: 048
  17. B 12 [Concomitant]
     Indication: Product used for unknown indication
  18. PROCTOSOL [Concomitant]
     Indication: Product used for unknown indication
     Dosage: 2.5 %, 2X/DAY
     Dates: start: 20231212
  19. FIORICET [Concomitant]
     Active Substance: ACETAMINOPHEN\BUTALBITAL\CAFFEINE
     Indication: Headache
     Dosage: AS NEEDED
  20. DIFICID [Concomitant]
     Active Substance: FIDAXOMICIN
     Indication: Clostridium difficile infection

REACTIONS (11)
  - Clostridium difficile infection [Recovered/Resolved]
  - Eructation [Recovered/Resolved]
  - Headache [Recovered/Resolved]
  - Pyrexia [Recovered/Resolved]
  - Clostridium test positive [Recovered/Resolved]
  - Abdominal pain [Not Recovered/Not Resolved]
  - Malaise [Recovered/Resolved]
  - Abdominal distension [Recovered/Resolved]
  - Bowel movement irregularity [Recovered/Resolved]
  - Diarrhoea [Not Recovered/Not Resolved]
  - Nausea [Not Recovered/Not Resolved]

NARRATIVE: CASE EVENT DATE: 20240201
